FAERS Safety Report 13055143 (Version 1)
Quarter: 2016Q4

REPORT INFORMATION
  Report Type: Spontaneous
  Country: US (occurrence: US)
  Receive Date: 20161222
  Receipt Date: 20161222
  Transmission Date: 20170207
  Serious: Yes (Hospitalization)
  Sender: FDA-Public Use
  Company Number: None

PATIENT
  Age: 64 Year
  Sex: Female

DRUGS (4)
  1. ONDANSETRON [Concomitant]
     Active Substance: ONDANSETRON
  2. GABAPENTIN. [Concomitant]
     Active Substance: GABAPENTIN
  3. CAPECITABINE. [Suspect]
     Active Substance: CAPECITABINE
     Indication: BREAST CANCER
     Dosage: 1000MG BID DAYS 1-14, 7 OFF ORAL
     Route: 048
     Dates: start: 20161111
  4. PROCHLORPER [Concomitant]

REACTIONS (4)
  - Disorientation [None]
  - Balance disorder [None]
  - Dysarthria [None]
  - Vision blurred [None]

NARRATIVE: CASE EVENT DATE: 201612
